FAERS Safety Report 12531842 (Version 1)
Quarter: 2016Q3

REPORT INFORMATION
  Report Type: Spontaneous
  Country: AU (occurrence: AU)
  Receive Date: 20160706
  Receipt Date: 20160706
  Transmission Date: 20161109
  Serious: Yes (Death)
  Sender: FDA-Public Use
  Company Number: AU-EISAI MEDICAL RESEARCH-EC-2016-017780

PATIENT
  Age: 73 Year
  Sex: Female

DRUGS (1)
  1. LENVIMA [Suspect]
     Active Substance: LENVATINIB
     Indication: THYROID CANCER
     Route: 048
     Dates: end: 20160421

REACTIONS (2)
  - Malignant neoplasm progression [Fatal]
  - Performance status decreased [Unknown]

NARRATIVE: CASE EVENT DATE: 20160421
